FAERS Safety Report 6604565-0 (Version None)
Quarter: 2010Q1

REPORT INFORMATION
  Report Type: 
  Country: None (occurrence: None)
  Receive Date: 20100226
  Receipt Date: 20091125
  Transmission Date: 20100710
  Serious: No
  Sender: FDA-Public Use
  Company Number: A0832019A

PATIENT
  Age: 34 Year
  Sex: Female

DRUGS (3)
  1. LAMICTAL CD [Suspect]
     Indication: BIPOLAR DISORDER
     Dosage: 100MG PER DAY
     Route: 048
     Dates: start: 20090720, end: 20091120
  2. LAMOTRIGINE [Suspect]
     Indication: BIPOLAR DISORDER
     Dosage: 100MG PER DAY
     Route: 048
     Dates: start: 20091120
  3. SEROQUEL [Concomitant]

REACTIONS (4)
  - DRUG INTOLERANCE [None]
  - EX-TOBACCO USER [None]
  - PANIC ATTACK [None]
  - VOMITING [None]
